FAERS Safety Report 20453974 (Version 1)
Quarter: 2022Q1

REPORT INFORMATION
  Report Type: Spontaneous
  Country: CA (occurrence: CA)
  Receive Date: 20220210
  Receipt Date: 20220210
  Transmission Date: 20220423
  Serious: Yes (Other)
  Sender: FDA-Public Use
  Company Number: None

PATIENT
  Age: 68 Year
  Sex: Male

DRUGS (9)
  1. METHOTREXATE [Suspect]
     Active Substance: METHOTREXATE
     Indication: Product used for unknown indication
  2. ASPIRIN [Concomitant]
     Active Substance: ASPIRIN
  3. CALCIUM [Concomitant]
     Active Substance: CALCIUM
  4. FOLIC ACID [Concomitant]
     Active Substance: FOLIC ACID
  5. HYDROMORPHONE HYDROCHLORIDE [Concomitant]
     Active Substance: HYDROMORPHONE HYDROCHLORIDE
     Dosage: 2 EVERY 1 DAYS
  6. LYRICA [Concomitant]
     Active Substance: PREGABALIN
     Dosage: 2 EVERY 1 DAYS
  7. ROSUVASTATIN [Concomitant]
     Active Substance: ROSUVASTATIN
  8. TRAZODONE [Concomitant]
     Active Substance: TRAZODONE HYDROCHLORIDE
  9. VITAMIN D [Concomitant]
     Active Substance: VITAMIN D NOS

REACTIONS (4)
  - Joint destruction [Unknown]
  - Loss of personal independence in daily activities [Unknown]
  - Psoriatic arthropathy [Unknown]
  - Synovitis [Unknown]
